FAERS Safety Report 7274078-4 (Version None)
Quarter: 2011Q1

REPORT INFORMATION
  Report Type: 
  Country: None (occurrence: None)
  Receive Date: 20110204
  Receipt Date: 20110120
  Transmission Date: 20110831
  Serious: Yes (Hospitalization)
  Sender: FDA-Public Use
  Company Number: US-BIOGENIDEC-2009BI009775

PATIENT
  Age: 41 Year
  Sex: Female

DRUGS (3)
  1. TYSABRI [Suspect]
     Route: 042
     Dates: start: 20061213
  2. TYSABRI [Suspect]
     Indication: MULTIPLE SCLEROSIS
     Route: 042
  3. TYSABRI [Suspect]
     Route: 042
     Dates: start: 19990201, end: 20051115

REACTIONS (2)
  - PAIN IN EXTREMITY [None]
  - INTRACRANIAL ANEURYSM [None]
